FAERS Safety Report 6937519-5 (Version None)
Quarter: 2010Q3

REPORT INFORMATION
  Report Type: 
  Country: None (occurrence: None)
  Receive Date: 20100823
  Receipt Date: 20100823
  Transmission Date: 20110219
  Serious: Yes (Death, Life-Threatening, Hospitalization, Disabling, Congenital Anomaly, Other)
  Sender: FDA-Public Use
  Company Number: None

PATIENT
  Age: 63 Year
  Sex: Male
  Weight: 56.6996 kg

DRUGS (1)
  1. CREON [Suspect]
     Indication: PANCREATIC ENZYME ABNORMALITY
     Dosage: 1 CAPSULE 1 PER DAY PO
     Route: 048
     Dates: start: 20100727, end: 20100809

REACTIONS (4)
  - NAUSEA [None]
  - PRODUCT FORMULATION ISSUE [None]
  - TONGUE COATED [None]
  - TONGUE DISCOLOURATION [None]
